FAERS Safety Report 9759564 (Version 2)
Quarter: 2015Q3

REPORT INFORMATION
  Report Type: Spontaneous
  Country: US (occurrence: US)
  Receive Date: 20131216
  Receipt Date: 20150805
  Transmission Date: 20151125
  Serious: No
  Sender: FDA-Public Use
  Company Number: US-GILEAD-2010-0028084

PATIENT
  Age: 61 Year
  Sex: Male
  Weight: 89.36 kg

DRUGS (9)
  1. LETAIRIS [Suspect]
     Active Substance: AMBRISENTAN
     Indication: PULMONARY ARTERIAL HYPERTENSION
     Route: 048
     Dates: start: 20090709
  2. ZOLOFT [Concomitant]
     Active Substance: SERTRALINE HYDROCHLORIDE
  3. LASIX [Concomitant]
     Active Substance: FUROSEMIDE
  4. REVATIO [Concomitant]
     Active Substance: SILDENAFIL CITRATE
  5. ZOCOR [Concomitant]
     Active Substance: SIMVASTATIN
  6. AMBIEN [Concomitant]
     Active Substance: ZOLPIDEM TARTRATE
  7. MULTIVITAMIN [Concomitant]
     Active Substance: VITAMINS
  8. COREG [Concomitant]
     Active Substance: CARVEDILOL
  9. SPIRONOLACTONE. [Concomitant]
     Active Substance: SPIRONOLACTONE

REACTIONS (1)
  - Nasal congestion [Unknown]
